FAERS Safety Report 15736036 (Version 1)
Quarter: 2018Q4

REPORT INFORMATION
  Report Type: Spontaneous
  Country: GB (occurrence: GB)
  Receive Date: 20181218
  Receipt Date: 20181218
  Transmission Date: 20190205
  Serious: Yes (Other)
  Sender: FDA-Public Use
  Company Number: GB-DENTSPLY-2018SCDP000540

PATIENT
  Age: 37 Year
  Sex: Female

DRUGS (2)
  1. LIDOCAINE HYDROCHLORIDE AND EPINEPHRINE BITARTRATE [Suspect]
     Active Substance: EPINEPHRINE BITARTRATE\LIDOCAINE HYDROCHLORIDE
     Indication: LOCAL ANAESTHESIA
     Dosage: UNKLIGNOCAINE 2% ADRENALINE 1:80 000
  2. LIGNOCAINE                         /00033401/ [Concomitant]
     Active Substance: LIDOCAINE HYDROCHLORIDE
     Indication: LOCAL ANAESTHESIA
     Dosage: 2 %, UNK

REACTIONS (5)
  - Gingival oedema [Unknown]
  - Pruritus [Unknown]
  - Angioedema [Unknown]
  - Type IV hypersensitivity reaction [Unknown]
  - Erythema [Unknown]
